FAERS Safety Report 9539165 (Version 1)
Quarter: 2013Q2

REPORT INFORMATION
  Report Type: Spontaneous
  Country: US (occurrence: None)
  Receive Date: 20130507
  Receipt Date: 20130507
  Transmission Date: 20140414
  Serious: No
  Sender: FDA-Public Use
  Company Number: PHEH2013US002994

PATIENT
  Age: 52 Year
  Sex: Female

DRUGS (1)
  1. AFINITOR [Suspect]
     Route: 048
     Dates: start: 20121225, end: 20130202

REACTIONS (3)
  - Eye infection viral [None]
  - Eye swelling [None]
  - Eye infection staphylococcal [None]
